FAERS Safety Report 18410449 (Version 3)
Quarter: 2022Q1

REPORT INFORMATION
  Report Type: Spontaneous
  Country: US (occurrence: US)
  Receive Date: 20201021
  Receipt Date: 20220310
  Transmission Date: 20220423
  Serious: Yes (Other)
  Sender: FDA-Public Use
  Company Number: US-PFIZER INC-2020406013

PATIENT
  Age: 56 Year
  Sex: Female
  Weight: 59.6 kg

DRUGS (4)
  1. DILANTIN [Suspect]
     Active Substance: PHENYTOIN
     Indication: Partial seizures
     Dosage: 3-4 EVERY NIGHT
  2. DILANTIN [Suspect]
     Active Substance: PHENYTOIN
     Dosage: 100 MG, FOUR TIMES A DAY (TOTAL OF 4 CAPSULES, 400 MG)
     Route: 048
  3. DILANTIN [Suspect]
     Active Substance: PHENYTOIN
     Dosage: 300 MG, EVERY NIGHT
     Dates: start: 201102
  4. DILANTIN [Suspect]
     Active Substance: PHENYTOIN
     Dosage: 100 MG, 4 CAPSULES AT BEDTIME

REACTIONS (3)
  - Seizure [Unknown]
  - Meningioma [Unknown]
  - Expired product administered [Unknown]
